FAERS Safety Report 7376522-0 (Version None)
Quarter: 2011Q1

REPORT INFORMATION
  Report Type: 
  Country: None (occurrence: None)
  Receive Date: 20110325
  Receipt Date: 20110315
  Transmission Date: 20110831
  Serious: Yes (Other)
  Sender: FDA-Public Use
  Company Number: BR-GENENTECH-302333

PATIENT
  Sex: Female
  Weight: 47 kg

DRUGS (9)
  1. FOLIC ACID [Concomitant]
     Indication: PRODUCT USED FOR UNKNOWN INDICATION
     Dosage: 5 MG, UNK
  2. METHOTREXATE [Concomitant]
     Indication: PRODUCT USED FOR UNKNOWN INDICATION
     Dosage: UNK
  3. PREDNISONE [Concomitant]
     Indication: PRODUCT USED FOR UNKNOWN INDICATION
     Dosage: 5 MG, UNK
     Dates: start: 19960101
  4. UNSPECIFIED DRUG [Concomitant]
     Indication: PREMEDICATION
  5. PREDNISONE [Concomitant]
     Dosage: 10 MG, UNK
  6. RITUXIMAB [Suspect]
     Indication: RHEUMATOID ARTHRITIS
     Dosage: UNK
     Route: 042
     Dates: start: 20091001, end: 20091101
  7. CALCIUM CARBONATE [Concomitant]
     Indication: PRODUCT USED FOR UNKNOWN INDICATION
     Dosage: 500 MG, UNK
  8. ENBREL [Suspect]
     Indication: PRODUCT USED FOR UNKNOWN INDICATION
     Dosage: UNK
     Route: 065
  9. OMEPRAZOLE [Concomitant]
     Indication: PRODUCT USED FOR UNKNOWN INDICATION
     Dosage: 20 MG, UNK

REACTIONS (16)
  - HYPERSENSITIVITY [None]
  - GAIT DISTURBANCE [None]
  - FALL [None]
  - SWELLING [None]
  - MOVEMENT DISORDER [None]
  - RASH MACULAR [None]
  - FEELING COLD [None]
  - DEPRESSION [None]
  - ARTHRALGIA [None]
  - JOINT SWELLING [None]
  - PAIN IN EXTREMITY [None]
  - PAIN [None]
  - BLOOD PRESSURE ABNORMAL [None]
  - BACK PAIN [None]
  - RHEUMATIC FEVER [None]
  - OCULAR HYPERAEMIA [None]
